FAERS Safety Report 14577305 (Version 1)
Quarter: 2018Q1

REPORT INFORMATION
  Report Type: Spontaneous
  Country: US (occurrence: US)
  Receive Date: 20180226
  Receipt Date: 20180226
  Transmission Date: 20180509
  Serious: Yes (Death)
  Sender: FDA-Public Use
  Company Number: None

PATIENT
  Age: 63 Year
  Sex: Female

DRUGS (11)
  1. OMEGA 3 [Concomitant]
     Active Substance: OMEGA-3 FATTY ACIDS
  2. VITAMIN B [Concomitant]
     Active Substance: VITAMIN B
  3. GLUCOSAMINE [Concomitant]
     Active Substance: GLUCOSAMINE
  4. VOLTAREN [Concomitant]
     Active Substance: DICLOFENAC SODIUM
  5. OMNITROPE [Suspect]
     Active Substance: SOMATROPIN
     Indication: HYPOPITUITARISM
     Route: 058
     Dates: start: 20151212, end: 20171115
  6. VITAMIN D3 [Concomitant]
     Active Substance: CHOLECALCIFEROL
  7. HYDROCHLOROT [Concomitant]
     Active Substance: HYDROCHLOROTHIAZIDE
  8. OXYCODONE [Concomitant]
     Active Substance: OXYCODONE
  9. MULTI VITAMIN [Concomitant]
     Active Substance: VITAMINS
  10. ESTRADIOL. [Concomitant]
     Active Substance: ESTRADIOL
  11. DOXEPIN [Concomitant]
     Active Substance: DOXEPIN

REACTIONS (1)
  - Death [None]

NARRATIVE: CASE EVENT DATE: 20180119
